FAERS Safety Report 5664809-9 (Version None)
Quarter: 2008Q1

REPORT INFORMATION
  Report Type: 
  Country: None (occurrence: None)
  Receive Date: 20080314
  Receipt Date: 20080311
  Transmission Date: 20080703
  Serious: Yes (Death)
  Sender: FDA-Public Use
  Company Number: DE-ABBOTT-08P-062-0442228-00

PATIENT
  Age: 85 Year
  Sex: Male
  Weight: 82 kg

DRUGS (1)
  1. ZEMPLAR [Suspect]
     Indication: HYPERPARATHYROIDISM SECONDARY
     Route: 042
     Dates: end: 20071114

REACTIONS (1)
  - INTESTINAL ISCHAEMIA [None]
